FAERS Safety Report 24366542 (Version 1)
Quarter: 2024Q3

REPORT INFORMATION
  Report Type: Report from Study
  Country: US (occurrence: US)
  Receive Date: 20240926
  Receipt Date: 20240926
  Transmission Date: 20241017
  Serious: Yes (Death, Other)
  Sender: RANBAXY
  Company Number: US-SUN PHARMACEUTICAL INDUSTRIES LTD-2024R1-469649

PATIENT
  Age: 10 Year
  Sex: Male

DRUGS (2)
  1. DECITABINE [Suspect]
     Active Substance: DECITABINE
     Indication: Myeloid leukaemia
     Dosage: UNK 3 CYCLES
     Route: 065
  2. VENETOCLAX [Suspect]
     Active Substance: VENETOCLAX
     Indication: Myeloid leukaemia
     Dosage: UNK 3 CYCLES
     Route: 048

REACTIONS (1)
  - Therapeutic response decreased [Fatal]
